FAERS Safety Report 8840281 (Version 1)
Quarter: 2012Q4

REPORT INFORMATION
  Report Type: 
  Country: CN (occurrence: CN)
  Receive Date: 20121015
  Receipt Date: 20121015
  Transmission Date: 20130627
  Serious: Yes (Hospitalization)
  Sender: FDA-Public Use
  Company Number: CN-ROCHE-1144869

PATIENT
  Age: 59 Year
  Sex: Male
  Weight: 51 kg

DRUGS (3)
  1. CELLCEPT [Suspect]
     Indication: RENAL TRANSPLANT
     Route: 048
     Dates: start: 20091225, end: 201207
  2. CELLCEPT [Suspect]
     Route: 048
     Dates: start: 201207
  3. PROGRAF [Concomitant]
     Indication: RENAL TRANSPLANT
     Dosage: 1mg in the morning and 0.5mg in the evening
     Route: 048
     Dates: start: 20091225

REACTIONS (5)
  - Lung infection [Recovered/Resolved]
  - Haemoglobin increased [Recovered/Resolved]
  - Immunosuppressant drug level increased [Recovered/Resolved]
  - Blood glucose increased [Recovered/Resolved]
  - Nasopharyngitis [Unknown]
